FAERS Safety Report 25066416 (Version 1)
Quarter: 2025Q1

REPORT INFORMATION
  Report Type: Spontaneous
  Country: US (occurrence: US)
  Receive Date: 20250312
  Receipt Date: 20250312
  Transmission Date: 20250408
  Serious: No
  Sender: CELLTRION
  Company Number: US-CELLTRION INC.-2024US031660

PATIENT

DRUGS (1)
  1. ZYMFENTRA [Suspect]
     Active Substance: INFLIXIMAB-DYYB
     Indication: Crohn^s disease
     Dosage: INJECT 120 MG EVERY 2 WEEKS SUBCUTANEOUSLY
     Route: 058
     Dates: start: 20241209

REACTIONS (2)
  - Injection site pain [Recovered/Resolved]
  - Injection site urticaria [Recovered/Resolved]

NARRATIVE: CASE EVENT DATE: 20241209
